FAERS Safety Report 6198276-6 (Version None)
Quarter: 2009Q2

REPORT INFORMATION
  Report Type: 
  Country: None (occurrence: None)
  Receive Date: 20090521
  Receipt Date: 20090414
  Transmission Date: 20091009
  Serious: No
  Sender: FDA-Public Use
  Company Number: US-BAYER-200911236BCC

PATIENT
  Sex: Male

DRUGS (1)
  1. ALEVE [Suspect]
     Indication: ARTHRALGIA
     Dosage: TOOK ALEVE BEFORE HORSE BACK RIDING TO ADDRESS PAIN IN HIS HIP.
     Route: 048

REACTIONS (1)
  - ARTHRALGIA [None]
